FAERS Safety Report 8418379-2 (Version None)
Quarter: 2012Q2

REPORT INFORMATION
  Report Type: 
  Country: None (occurrence: None)
  Receive Date: 20120607
  Receipt Date: 20120601
  Transmission Date: 20120825
  Serious: Yes (Other)
  Sender: FDA-Public Use
  Company Number: NL-PFIZER INC-2012109660

PATIENT
  Age: 4 Year
  Sex: Male

DRUGS (2)
  1. LEVOTHYROXINE SODIUM [Concomitant]
     Dosage: 50 UG, 1X/DAY
     Dates: start: 20010309
  2. SOMATROPIN [Suspect]
     Indication: GROWTH HORMONE DEFICIENCY
     Dosage: 0.4 UNK, 1X/DAY
     Dates: start: 20010223

REACTIONS (1)
  - BRAIN OEDEMA [None]
